FAERS Safety Report 13539597 (Version 7)
Quarter: 2017Q3

REPORT INFORMATION
  Report Type: Spontaneous
  Country: KR (occurrence: KR)
  Receive Date: 20170512
  Receipt Date: 20170918
  Transmission Date: 20171127
  Serious: Yes (Hospitalization, Other)
  Sender: FDA-Public Use
  Company Number: KR-009507513-1610KOR001419

PATIENT
  Age: 57 Year
  Sex: Female
  Weight: 47.1 kg

DRUGS (32)
  1. CISPLATIN. [Concomitant]
     Active Substance: CISPLATIN
     Indication: ANAPLASTIC THYROID CANCER
     Dosage: 83 MG, ONCE (CYCLE 1), STRENGTH: 50 MG/100 ML
     Route: 042
     Dates: start: 20160920, end: 20160920
  2. CISPLATIN. [Concomitant]
     Active Substance: CISPLATIN
     Dosage: 41 MG, ONCE (CYCLE 6), STRENGTH: 50 MG/100 ML
     Route: 042
     Dates: start: 20170124, end: 20170124
  3. ENTELON [Concomitant]
     Indication: PROPHYLAXIS
     Dosage: 150 MG, BID
     Route: 048
     Dates: start: 20160819
  4. EMEND (FOSAPREPITANT DIMEGLUMINE) [Suspect]
     Active Substance: FOSAPREPITANT DIMEGLUMINE
     Dosage: 150 MG, ONCE
     Route: 042
     Dates: start: 20161111, end: 20161111
  5. EMEND (FOSAPREPITANT DIMEGLUMINE) [Suspect]
     Active Substance: FOSAPREPITANT DIMEGLUMINE
     Dosage: 150 MG, ONCE
     Route: 042
     Dates: start: 20161212, end: 20161212
  6. ADRIAMYCIN [Concomitant]
     Active Substance: DOXORUBICIN HYDROCHLORIDE
     Indication: ANAPLASTIC THYROID CANCER
     Dosage: 58 MG, ONCE (CYCLE 1)
     Route: 042
     Dates: start: 20160920, end: 20160920
  7. ENDOXAN [Concomitant]
     Active Substance: CYCLOPHOSPHAMIDE
     Indication: ANAPLASTIC THYROID CANCER
     Dosage: 1000 MG, ONCE (CYCLE 1)
     Route: 042
     Dates: start: 20160920, end: 20160920
  8. EMEND (FOSAPREPITANT DIMEGLUMINE) [Suspect]
     Active Substance: FOSAPREPITANT DIMEGLUMINE
     Indication: PROPHYLAXIS OF NAUSEA AND VOMITING
     Dosage: 150 MG, ONCE
     Route: 042
     Dates: start: 20160920, end: 20160920
  9. EMEND (FOSAPREPITANT DIMEGLUMINE) [Suspect]
     Active Substance: FOSAPREPITANT DIMEGLUMINE
     Dosage: 150 MG, ONCE
     Route: 042
     Dates: start: 20170102, end: 20170102
  10. DEXAMETHASONE. [Concomitant]
     Active Substance: DEXAMETHASONE
     Indication: PROPHYLAXIS OF NAUSEA AND VOMITING
     Dosage: 8 MG, BID
     Route: 048
     Dates: start: 20160922, end: 20160923
  11. ZEMIMET [Concomitant]
     Indication: DIABETES MELLITUS
     Dosage: 1 TABLET, BID
     Route: 048
  12. OMACOR [Concomitant]
     Active Substance: OMEGA-3-ACID ETHYL ESTERS
     Indication: DYSLIPIDAEMIA
     Dosage: 1 CAPSULE, BID
     Route: 048
     Dates: end: 20161129
  13. HEALTHCAL [Concomitant]
     Indication: HYPOPARATHYROIDISM
     Dosage: 500 MG, QD
     Route: 048
     Dates: start: 20160730, end: 20170103
  14. TARGIN [Concomitant]
     Active Substance: NALOXONE HYDROCHLORIDE\OXYCODONE HYDROCHLORIDE
     Indication: PAIN
     Dosage: 1 TABLET, BID
     Route: 048
     Dates: start: 20160902, end: 20160928
  15. EMEND (FOSAPREPITANT DIMEGLUMINE) [Suspect]
     Active Substance: FOSAPREPITANT DIMEGLUMINE
     Dosage: 150 MG, ONCE
     Route: 042
     Dates: start: 20161022, end: 20161022
  16. CISPLATIN. [Concomitant]
     Active Substance: CISPLATIN
     Dosage: 83 MG, ONCE (CYCLE 2), STRENGTH: 50 MG/100 ML
     Route: 042
     Dates: start: 20161022, end: 20161022
  17. LASIX [Concomitant]
     Active Substance: FUROSEMIDE
     Indication: DRUG TOXICITY PROPHYLAXIS
     Dosage: 20 MG, ONCE, STRENGTH: 20 MG/2 ML
     Route: 042
     Dates: start: 20160920, end: 20160920
  18. CISPLATIN. [Concomitant]
     Active Substance: CISPLATIN
     Dosage: 83 MG, ONCE (CYCLE 3), STRENGTH: 50 MG/100 ML
     Route: 042
     Dates: start: 20161111, end: 20161111
  19. DEXA (DEXAMETHASONE SODIUM PHOSPHATE) [Concomitant]
     Indication: PROPHYLAXIS OF NAUSEA AND VOMITING
     Dosage: 12 MG, ONCE, STRENGTH: 5 MG/1 ML
     Route: 042
     Dates: start: 20160920, end: 20160920
  20. DEXA (DEXAMETHASONE SODIUM PHOSPHATE) [Concomitant]
     Dosage: 8 MG, ONCE, STRENGTH: 5 MG/1 ML
     Route: 042
     Dates: start: 20160921, end: 20160921
  21. MOPUREN [Concomitant]
     Indication: GASTRITIS PROPHYLAXIS
     Dosage: 5 MG, TID
     Route: 048
     Dates: start: 20160708, end: 20160921
  22. LIPITOR [Concomitant]
     Active Substance: ATORVASTATIN CALCIUM
     Indication: DYSLIPIDAEMIA
     Dosage: 20 MG, QD
     Route: 048
  23. SYNTHYROXINE [Concomitant]
     Active Substance: LEVOTHYROXINE SODIUM
     Indication: ANAPLASTIC THYROID CANCER
     Dosage: 0.1 MG, QD
     Route: 048
     Dates: start: 20160701
  24. ROCALTROL [Concomitant]
     Active Substance: CALCITRIOL
     Indication: HYPOPARATHYROIDISM
     Dosage: 0.25 MICROGRAM, QD
     Route: 048
     Dates: start: 20160730
  25. MANNITOL. [Concomitant]
     Active Substance: MANNITOL
     Indication: DRUG TOXICITY PROPHYLAXIS
     Dosage: 100 ML, ONCE
     Route: 042
     Dates: start: 20160920, end: 20160920
  26. EMEND (FOSAPREPITANT DIMEGLUMINE) [Suspect]
     Active Substance: FOSAPREPITANT DIMEGLUMINE
     Dosage: 150 MG, ONCE
     Route: 042
     Dates: start: 20170124, end: 20170124
  27. CISPLATIN. [Concomitant]
     Active Substance: CISPLATIN
     Dosage: 83 MG, ONCE (CYCLE 4), STRENGTH: 50 MG/100 ML
     Route: 042
     Dates: start: 20161212, end: 20161212
  28. CISPLATIN. [Concomitant]
     Active Substance: CISPLATIN
     Dosage: 83 MG, ONCE (CYCLE 5), STRENGTH: 50 MG/100 ML
     Route: 042
     Dates: start: 20170102, end: 20170102
  29. HERBEN RETARD [Concomitant]
     Indication: ANGINA PECTORIS
     Dosage: 90 MG, BID
     Route: 048
  30. MEGACE [Concomitant]
     Active Substance: MEGESTROL ACETATE
     Indication: APPETITE DISORDER
     Dosage: 625 MG, QD
     Route: 048
     Dates: start: 20160726, end: 20161021
  31. SANCUSO [Concomitant]
     Active Substance: GRANISETRON
     Indication: PROPHYLAXIS OF NAUSEA AND VOMITING
     Dosage: 34.3 MG, QD (80.2 X 66.6 MM^2)
     Route: 062
     Dates: start: 20160919, end: 20160926
  32. DUROGESIC [Concomitant]
     Active Substance: FENTANYL
     Indication: PAIN
     Dosage: 12 MICROGRAM/H, QD (5.25 CM2)
     Route: 062
     Dates: start: 20160831

REACTIONS (8)
  - Neutropenia [Recovered/Resolved]
  - Nausea [Recovered/Resolved]
  - Nasopharyngitis [Recovered/Resolved]
  - Postoperative wound infection [Recovered/Resolved]
  - Diarrhoea [Recovered/Resolved]
  - Nausea [Recovered/Resolved]
  - Drug ineffective [Unknown]
  - Asthenia [Recovered/Resolved]

NARRATIVE: CASE EVENT DATE: 2016
